FAERS Safety Report 15360639 (Version 1)
Quarter: 2018Q3

REPORT INFORMATION
  Report Type: Spontaneous
  Country: MX (occurrence: MX)
  Receive Date: 20180907
  Receipt Date: 20180907
  Transmission Date: 20181010
  Serious: Yes (Other)
  Sender: FDA-Public Use
  Company Number: MX-ROCHE-2180493

PATIENT
  Age: 12 Year
  Sex: Female

DRUGS (16)
  1. RITUXIMAB. [Concomitant]
     Active Substance: RITUXIMAB
     Route: 058
  2. ENALAPRIL [Concomitant]
     Active Substance: ENALAPRIL
     Indication: HYPERTENSION
     Route: 065
  3. MYCOPHENOLATE MOFETIL. [Suspect]
     Active Substance: MYCOPHENOLATE MOFETIL
     Indication: LUPUS NEPHRITIS
     Route: 065
  4. ACETYLSALICYLIC ACID [Suspect]
     Active Substance: ASPIRIN
     Indication: LUPUS NEPHRITIS
     Route: 065
  5. OMEPRAZOLE. [Concomitant]
     Active Substance: OMEPRAZOLE
  6. DABIGATRAN [Suspect]
     Active Substance: DABIGATRAN
     Indication: LUPUS NEPHRITIS
     Route: 065
  7. SUCRALFATE. [Concomitant]
     Active Substance: SUCRALFATE
  8. OCTREOTIDE. [Concomitant]
     Active Substance: OCTREOTIDE
     Route: 065
  9. METHYLPREDNISOLONE. [Concomitant]
     Active Substance: METHYLPREDNISOLONE
     Dosage: THREE BOLUSES
     Route: 065
  10. CYCLOPHOSPHAMIDE. [Concomitant]
     Active Substance: CYCLOPHOSPHAMIDE
     Dosage: ONE BOLUS
     Route: 058
  11. ENOXAPARIN [Concomitant]
     Active Substance: ENOXAPARIN
  12. MESALAZINE [Concomitant]
     Active Substance: MESALAMINE
  13. PREDNISONE. [Concomitant]
     Active Substance: PREDNISONE
     Route: 065
  14. PRAZOSIN. [Concomitant]
     Active Substance: PRAZOSIN
     Indication: HYPERTENSION
     Route: 065
  15. AMLODIPINE [Concomitant]
     Active Substance: AMLODIPINE BESYLATE
     Indication: HYPERTENSION
     Route: 065
  16. INTRAVENOUS IMMUNE GLOBULIN [Concomitant]
     Active Substance: HUMAN IMMUNOGLOBULIN G
     Route: 042

REACTIONS (3)
  - Upper gastrointestinal haemorrhage [Unknown]
  - Pancreatitis [Unknown]
  - Lower gastrointestinal haemorrhage [Unknown]
